FAERS Safety Report 11905917 (Version 2)
Quarter: 2016Q1

REPORT INFORMATION
  Report Type: Report from Study
  Country: US (occurrence: US)
  Receive Date: 20160111
  Receipt Date: 20160129
  Transmission Date: 20160526
  Serious: Yes (Other)
  Sender: FDA-Public Use
  Company Number: US-AMGEN-USASL2016000188

PATIENT
  Age: 55 Year
  Sex: Female

DRUGS (23)
  1. ENBREL [Suspect]
     Active Substance: ETANERCEPT
     Indication: PSORIATIC ARTHROPATHY
     Dosage: 50 MG, QWK
     Route: 058
     Dates: start: 20151222
  2. FOLIC ACID. [Concomitant]
     Active Substance: FOLIC ACID
  3. HUMALOG [Concomitant]
     Active Substance: INSULIN LISPRO
  4. FENOFIBRATE. [Concomitant]
     Active Substance: FENOFIBRATE
  5. LEXAPRO [Concomitant]
     Active Substance: ESCITALOPRAM OXALATE
  6. SIMVASTATIN. [Concomitant]
     Active Substance: SIMVASTATIN
  7. POTASSIUM [Concomitant]
     Active Substance: POTASSIUM
  8. METHOTREXATE [Concomitant]
     Active Substance: METHOTREXATE
  9. FERROUS SULFATE [Concomitant]
     Active Substance: FERROUS SULFATE\FERROUS SULFATE, DRIED
  10. AMLODIPINE BESILATE [Concomitant]
     Active Substance: AMLODIPINE BESYLATE
  11. ZYRTEC [Concomitant]
     Active Substance: CETIRIZINE HYDROCHLORIDE
     Dosage: UNK
  12. METFORMIN HCL [Concomitant]
     Active Substance: METFORMIN HYDROCHLORIDE
  13. ASPIRIN                            /00002701/ [Concomitant]
     Active Substance: ASPIRIN
  14. VITAMIN B12 [Concomitant]
     Active Substance: CYANOCOBALAMIN
  15. MUCINEX [Concomitant]
     Active Substance: GUAIFENESIN
  16. FUROSEMIDE. [Concomitant]
     Active Substance: FUROSEMIDE
  17. ESCITALOPRAM OXALATE. [Concomitant]
     Active Substance: ESCITALOPRAM OXALATE
  18. VITAMIN D                          /00107901/ [Concomitant]
     Active Substance: ERGOCALCIFEROL
  19. ROPINIROLE HCL [Concomitant]
     Active Substance: ROPINIROLE HYDROCHLORIDE
  20. LISINOPRIL. [Concomitant]
     Active Substance: LISINOPRIL
  21. LANTUS [Concomitant]
     Active Substance: INSULIN GLARGINE
  22. LANSOPRAZOLE. [Concomitant]
     Active Substance: LANSOPRAZOLE
  23. ALPRAZOLAM. [Concomitant]
     Active Substance: ALPRAZOLAM

REACTIONS (13)
  - Respiratory tract infection [Unknown]
  - Bronchitis [Unknown]
  - Fall [Unknown]
  - Hyperhidrosis [Unknown]
  - Mood swings [Unknown]
  - Arthropathy [Unknown]
  - Blood glucose decreased [Unknown]
  - Decreased immune responsiveness [Unknown]
  - Fatigue [Unknown]
  - Vision blurred [Unknown]
  - Hypertension [Unknown]
  - Hepatic enzyme increased [Unknown]
  - Sleep disorder [Unknown]

NARRATIVE: CASE EVENT DATE: 20160103
